FAERS Safety Report 24716681 (Version 1)
Quarter: 2024Q4

REPORT INFORMATION
  Report Type: Spontaneous
  Country: US (occurrence: US)
  Receive Date: 20241210
  Receipt Date: 20241210
  Transmission Date: 20250114
  Serious: No
  Sender: ROCHE
  Company Number: US-ROCHE-10000152914

PATIENT
  Age: 58 Year
  Sex: Female

DRUGS (1)
  1. ROZLYTREK [Suspect]
     Active Substance: ENTRECTINIB
     Indication: Neoplasm malignant
     Route: 048
     Dates: start: 202410

REACTIONS (4)
  - Confusional state [Unknown]
  - Muscular weakness [Unknown]
  - Dehydration [Unknown]
  - Urethral obstruction [Unknown]
